FAERS Safety Report 8414424-9 (Version None)
Quarter: 2012Q2

REPORT INFORMATION
  Report Type: 
  Country: None (occurrence: None)
  Receive Date: 20120605
  Receipt Date: 20120521
  Transmission Date: 20120825
  Serious: Yes (Other)
  Sender: FDA-Public Use
  Company Number: CHPA2012US011382

PATIENT
  Age: 44 Year
  Sex: Female

DRUGS (2)
  1. NICOTINE [Suspect]
     Indication: SMOKING CESSATION THERAPY
     Dosage: 14 MG, A DAY
     Route: 062
  2. NICOTINE [Suspect]
     Dosage: UNK, UNK
     Route: 062

REACTIONS (4)
  - METASTASES TO LUNG [None]
  - INAPPROPRIATE SCHEDULE OF DRUG ADMINISTRATION [None]
  - BRAIN NEOPLASM MALIGNANT [None]
  - THROMBOSIS [None]
